FAERS Safety Report 17894428 (Version 2)
Quarter: 2021Q1

REPORT INFORMATION
  Report Type: Report from Study
  Country: CO (occurrence: CO)
  Receive Date: 20200615
  Receipt Date: 20210315
  Transmission Date: 20210419
  Serious: Yes (Life-Threatening, Hospitalization, Other)
  Sender: FDA-Public Use
  Company Number: PHHY2019CO177728

PATIENT
  Age: 10 Year
  Sex: Male
  Weight: 48 kg

DRUGS (5)
  1. REVOLADE [Suspect]
     Active Substance: ELTROMBOPAG OLAMINE
     Dosage: 75 MG, QD (1 DF) (2 YEARS AGO)
     Route: 048
  2. MAXIDEX [Suspect]
     Active Substance: DEXAMETHASONE
     Indication: PRODUCT USED FOR UNKNOWN INDICATION
     Dosage: UNK
     Route: 065
  3. REVOLADE [Suspect]
     Active Substance: ELTROMBOPAG OLAMINE
     Indication: IMMUNE THROMBOCYTOPENIA
     Dosage: 50 MG, QD
     Route: 048
  4. REVOLADE [Suspect]
     Active Substance: ELTROMBOPAG OLAMINE
     Dosage: 25 MG, QD
     Route: 048
  5. MYCOPHENOLATE MOFETIL. [Suspect]
     Active Substance: MYCOPHENOLATE MOFETIL
     Indication: IMMUNE THROMBOCYTOPENIA
     Dosage: 200 MG, BID (200 MG IN THE MORNING AND 200 MG AT NIGHT)
     Route: 065

REACTIONS (13)
  - Diarrhoea haemorrhagic [Recovered/Resolved]
  - Vascular fragility [Recovered/Resolved]
  - Epistaxis [Recovered/Resolved]
  - Colitis [Unknown]
  - Overweight [Unknown]
  - Platelet count decreased [Recovered/Resolved]
  - Disease recurrence [Unknown]
  - Mouth haemorrhage [Recovered/Resolved]
  - Petechiae [Unknown]
  - Immune thrombocytopenia [Unknown]
  - Haemorrhage [Unknown]
  - Obesity [Unknown]
  - Platelet count decreased [Unknown]

NARRATIVE: CASE EVENT DATE: 202102
